FAERS Safety Report 10044291 (Version 2)
Quarter: 2014Q2

REPORT INFORMATION
  Report Type: Not Available
  Country: FR (occurrence: FR)
  Receive Date: 20140328
  Receipt Date: 20140516
  Transmission Date: 20141212
  Serious: Yes (Hospitalization)
  Sender: FDA-Public Use
  Company Number: FR-BEH-2014041287

PATIENT
  Age: 62 Year
  Sex: Female

DRUGS (17)
  1. PRIVIGEN [Suspect]
     Indication: TRANSPLANT REJECTION
     Route: 042
     Dates: start: 20131227, end: 20131228
  2. PRIVIGEN [Suspect]
  3. PRIVIGEN [Suspect]
  4. PRIVIGEN [Suspect]
  5. PRIVIGEN [Suspect]
  6. PRIVIGEN [Suspect]
  7. AMBISOME [Suspect]
     Dosage: 7.1429 MG (50 MG/WEEK)
  8. TEMERIT [Suspect]
     Indication: HYPERTENSION
     Route: 048
  9. CLICLOSPORINE [Concomitant]
     Indication: PROPHYLAXIS AGAINST TRANSPLANT REJECTION
     Route: 048
  10. CERTICAN [Concomitant]
     Indication: PROPHYLAXIS AGAINST TRANSPLANT REJECTION
     Dosage: 1.25 MG/2 DAYS
     Route: 048
  11. SOLUPRED [Concomitant]
     Route: 048
  12. ZITHROMAX [Concomitant]
     Dosage: 125 MG (10 MG/DAY)
     Route: 048
  13. ZELITREX [Concomitant]
     Indication: ANTIVIRAL PROPHYLAXIS
     Route: 048
  14. ESOMEPRAZOLE [Concomitant]
     Route: 048
  15. KEPPRA [Concomitant]
     Dosage: 250 MG TABLET
     Route: 048
  16. VASTEN [Concomitant]
     Indication: HYPERCHOLESTEROLAEMIA
     Route: 048
  17. LASILIX FAIBLE [Concomitant]
     Route: 048

REACTIONS (5)
  - Oedema peripheral [Unknown]
  - Hypertension [Recovered/Resolved]
  - Headache [Recovered/Resolved]
  - Vision blurred [Recovered/Resolved]
  - Headache [Recovered/Resolved]
